FAERS Safety Report 19139368 (Version 1)
Quarter: 2021Q2

REPORT INFORMATION
  Report Type: Spontaneous
  Country: US (occurrence: US)
  Receive Date: 20210415
  Receipt Date: 20210415
  Transmission Date: 20210717
  Serious: Yes (Death, Other)
  Sender: FDA-Public Use
  Company Number: US-GLAXOSMITHKLINE-US2021GSK083286

PATIENT
  Sex: Female

DRUGS (6)
  1. RANITIDINE. [Suspect]
     Active Substance: RANITIDINE
     Indication: IRRITABLE BOWEL SYNDROME
     Dosage: UNKNOWN AT THIS TIME, QD
     Route: 065
     Dates: start: 197901, end: 201001
  2. RANITIDINE CAPSULE [Suspect]
     Active Substance: RANITIDINE
     Indication: IRRITABLE BOWEL SYNDROME
     Dosage: UNKNOWN AT THIS TIME, QD
     Route: 065
     Dates: start: 197901, end: 201001
  3. ZANTAC [Suspect]
     Active Substance: RANITIDINE HYDROCHLORIDE
     Indication: IRRITABLE BOWEL SYNDROME
     Dosage: UNKNOWN AT THIS TIME, QD
     Route: 065
     Dates: start: 197901, end: 201001
  4. RANITIDINE. [Suspect]
     Active Substance: RANITIDINE
     Indication: IRRITABLE BOWEL SYNDROME
     Dosage: UNKNOWN AT THIS TIME, QD
     Route: 065
     Dates: start: 197901, end: 201001
  5. RANITIDINE. [Suspect]
     Active Substance: RANITIDINE
     Indication: IRRITABLE BOWEL SYNDROME
     Dosage: UNKNOWN AT THIS TIME, QD
     Route: 065
     Dates: start: 197901, end: 201001
  6. ZANTAC [Suspect]
     Active Substance: RANITIDINE HYDROCHLORIDE
     Indication: IRRITABLE BOWEL SYNDROME
     Dosage: UNKNOWN AT THIS TIME, QD
     Route: 065
     Dates: start: 197901, end: 201001

REACTIONS (2)
  - Pancreatic carcinoma [Fatal]
  - Colorectal cancer [Fatal]
